FAERS Safety Report 17540172 (Version 2)
Quarter: 2020Q2

REPORT INFORMATION
  Report Type: Spontaneous
  Country: NO (occurrence: NO)
  Receive Date: 20200313
  Receipt Date: 20200504
  Transmission Date: 20200713
  Serious: Yes (Other)
  Sender: FDA-Public Use
  Company Number: NO-ASTRAZENECA-2020SE35743

PATIENT
  Age: 57 Year
  Sex: Male

DRUGS (7)
  1. SELO ZOK [Suspect]
     Active Substance: METOPROLOL SUCCINATE
     Dosage: 50.0MG UNKNOWN
     Route: 048
     Dates: start: 2015
  2. ALBYL-E [Suspect]
     Active Substance: ASPIRIN\MAGNESIUM OXIDE
     Route: 065
     Dates: start: 2015
  3. LIPITOR [Suspect]
     Active Substance: ATORVASTATIN CALCIUM
     Route: 065
  4. MONOKET [Suspect]
     Active Substance: ISOSORBIDE MONONITRATE
     Route: 048
     Dates: start: 2015
  5. BRILIQUE [Suspect]
     Active Substance: TICAGRELOR
     Route: 048
     Dates: start: 2015
  6. ATACAND [Suspect]
     Active Substance: CANDESARTAN CILEXETIL
     Dosage: 4.0MG UNKNOWN
     Route: 048
     Dates: start: 2015
  7. LIPITOR [Suspect]
     Active Substance: ATORVASTATIN CALCIUM
     Route: 065
     Dates: start: 2015

REACTIONS (4)
  - Iliac artery stenosis [Unknown]
  - Blood pressure increased [Recovered/Resolved]
  - Chest pain [Unknown]
  - Drug tolerance decreased [Unknown]

NARRATIVE: CASE EVENT DATE: 201610
